FAERS Safety Report 11927357 (Version 17)
Quarter: 2017Q4

REPORT INFORMATION
  Report Type: Report from Study
  Country: US (occurrence: US)
  Receive Date: 20160119
  Receipt Date: 20171110
  Transmission Date: 20180320
  Serious: Yes (Hospitalization)
  Sender: FDA-Public Use
  Company Number: US-ACTELION-A-US2015-126695

PATIENT
  Age: 45 Year
  Sex: Female
  Weight: 106.58 kg

DRUGS (19)
  1. VELETRI [Suspect]
     Active Substance: EPOPROSTENOL
     Indication: PULMONARY HYPERTENSION
     Dosage: 60 NG/KG, PER MIN
     Route: 042
     Dates: start: 20110607
  2. ALBUTEROL SULFATE. [Concomitant]
     Active Substance: ALBUTEROL SULFATE
  3. OPSUMIT [Suspect]
     Active Substance: MACITENTAN
     Indication: PULMONARY HYPERTENSION
     Dosage: 10 MG, QD
     Route: 048
     Dates: start: 20141202
  4. VELETRI [Suspect]
     Active Substance: EPOPROSTENOL
     Dosage: UNK
     Route: 042
  5. COUMADIN [Concomitant]
     Active Substance: WARFARIN SODIUM
  6. AMITRIPTYLINE HYDROCHLORIDE. [Concomitant]
     Active Substance: AMITRIPTYLINE HYDROCHLORIDE
  7. ESCITALOPRAM OXALATE. [Concomitant]
     Active Substance: ESCITALOPRAM OXALATE
  8. FLONASE [Concomitant]
     Active Substance: FLUTICASONE PROPIONATE
  9. GABAPENTIN. [Concomitant]
     Active Substance: GABAPENTIN
  10. XARELTO [Concomitant]
     Active Substance: RIVAROXABAN
  11. ATROVENT HFA [Concomitant]
     Active Substance: IPRATROPIUM BROMIDE
  12. LISINOPRIL. [Concomitant]
     Active Substance: LISINOPRIL
  13. MAGNESIUM OXIDE. [Concomitant]
     Active Substance: MAGNESIUM OXIDE
  14. FUROSEMIDE. [Concomitant]
     Active Substance: FUROSEMIDE
  15. TRAMADOL HYDROCHLORIDE. [Concomitant]
     Active Substance: TRAMADOL HYDROCHLORIDE
  16. FERROUS SULFATE. [Concomitant]
     Active Substance: FERROUS SULFATE
  17. OMEPRAZOLE. [Concomitant]
     Active Substance: OMEPRAZOLE
  18. SPIRONOLACTONE. [Concomitant]
     Active Substance: SPIRONOLACTONE
  19. REMODULIN [Concomitant]
     Active Substance: TREPROSTINIL

REACTIONS (27)
  - Tenderness [Unknown]
  - Catheter site pruritus [Unknown]
  - Blood culture positive [Unknown]
  - Pain in jaw [Unknown]
  - Device related infection [Unknown]
  - Catheter site infection [Recovered/Resolved]
  - Hot flush [Unknown]
  - Catheter culture positive [Unknown]
  - Bacterial infection [Unknown]
  - Device related thrombosis [Unknown]
  - Skin sensitisation [Unknown]
  - Catheter site pain [Unknown]
  - Medical device change [Unknown]
  - Syncope [Unknown]
  - Infection [Unknown]
  - Pain in extremity [Unknown]
  - Malaise [Unknown]
  - Fatigue [Unknown]
  - Device occlusion [Unknown]
  - Muscle spasms [Unknown]
  - Pyrexia [Unknown]
  - Staphylococcal bacteraemia [Unknown]
  - Asthenia [Unknown]
  - Hyperhidrosis [Unknown]
  - Expired product administered [Unknown]
  - Dizziness [Unknown]
  - Sluggishness [Unknown]

NARRATIVE: CASE EVENT DATE: 20160808
